FAERS Safety Report 19701804 (Version 1)
Quarter: 2021Q3

REPORT INFORMATION
  Report Type: Other
  Country: SG (occurrence: SG)
  Receive Date: 20210813
  Receipt Date: 20210813
  Transmission Date: 20211014
  Serious: Yes (Other)
  Sender: FDA-Public Use
  Company Number: SG-ROCHE-2884641

PATIENT

DRUGS (3)
  1. GANCICLOVIR. [Suspect]
     Active Substance: GANCICLOVIR
     Indication: ANTIVIRAL PROPHYLAXIS
     Route: 042
  2. VALGANCICLOVIR. [Suspect]
     Active Substance: VALGANCICLOVIR
     Indication: ANTIVIRAL PROPHYLAXIS
     Dosage: EVERY MORNING?1 MONTHS, 3 MONTHS AND 6 MONTHS
     Route: 048
  3. VALACYCLOVIR [Suspect]
     Active Substance: VALACYCLOVIR HYDROCHLORIDE
     Indication: ANTIVIRAL PROPHYLAXIS
     Dosage: 2000 MG 4 TIMES A DAY?1 MONTHS AND 2 MONTHS
     Route: 048

REACTIONS (6)
  - Neutropenia [Unknown]
  - Cytomegalovirus infection reactivation [Unknown]
  - Cytomegalovirus infection [Unknown]
  - Cytomegalovirus syndrome [Unknown]
  - Cytomegalovirus chorioretinitis [Unknown]
  - Cytopenia [Unknown]
